FAERS Safety Report 9911122 (Version 2)
Quarter: 2014Q1

REPORT INFORMATION
  Report Type: Spontaneous
  Country: US (occurrence: US)
  Receive Date: 20140219
  Receipt Date: 20140219
  Transmission Date: 20141002
  Serious: No
  Sender: FDA-Public Use
  Company Number: US-GILEAD-2012-0050176

PATIENT
  Age: 46 Year
  Sex: Male

DRUGS (2)
  1. LETAIRIS [Suspect]
     Indication: PULMONARY HYPERTENSION
     Dosage: 5 MG, UNK
     Route: 048
     Dates: start: 20120119
  2. ADCIRCA [Concomitant]

REACTIONS (3)
  - Psoriasis [Unknown]
  - Hypotension [Unknown]
  - Headache [Unknown]
